FAERS Safety Report 7424967-2 (Version None)
Quarter: 2011Q2

REPORT INFORMATION
  Report Type: 
  Country: None (occurrence: None)
  Receive Date: 20110419
  Receipt Date: 20101108
  Transmission Date: 20111010
  Serious: Yes (Hospitalization, Other)
  Sender: FDA-Public Use
  Company Number: US-BAYER-201011743NA

PATIENT
  Age: 23 Year
  Sex: Female
  Weight: 73 kg

DRUGS (24)
  1. YAZ [Suspect]
     Route: 048
     Dates: start: 20090702, end: 20090802
  2. TAMIFLU [Concomitant]
     Indication: VIRAL INFECTION
  3. TORADOL [Concomitant]
     Dosage: UNK
     Dates: start: 20080217
  4. YAZ [Suspect]
     Indication: ORAL CONTRACEPTION
     Route: 048
     Dates: start: 20071120, end: 20090501
  5. IMITREX [Concomitant]
     Indication: MIGRAINE
     Dates: start: 20080401
  6. YAZ [Suspect]
     Dosage: UNK
     Dates: start: 20090601
  7. COUGH AND COLD PREPARATIONS [Concomitant]
     Indication: VIRAL INFECTION
  8. TRAMADOL HCL CF [Concomitant]
     Dates: start: 20080216
  9. AZITHROMYCIN [Concomitant]
  10. NAPROXEN [Concomitant]
  11. PANTOPRAZOLE [Concomitant]
  12. PULMICORT [Concomitant]
  13. PHENERGAN HCL [Concomitant]
     Route: 048
     Dates: start: 20080701, end: 20090401
  14. MULTI-VITAMINS [Concomitant]
     Indication: PRODUCT USED FOR UNKNOWN INDICATION
     Route: 048
     Dates: start: 20070717, end: 20090408
  15. ACETAMINOPHEN [Concomitant]
     Indication: VIRAL INFECTION
  16. AMOXICILLIN [Concomitant]
     Indication: VIRAL INFECTION
     Dosage: 500 MG (DAILY DOSE), ,
     Dates: start: 20080217
  17. FIORICET [Concomitant]
     Indication: PAIN
     Dosage: 50-325-40MG
     Route: 048
     Dates: end: 20090408
  18. GUAIFENESIN AND PSEUDOEPHEDRINE HYDROCHLORIDE [Concomitant]
  19. TRAMADOL HYDROCHLORIDE [Concomitant]
     Dates: start: 20080216
  20. PROFEN FORTE DM [Concomitant]
  21. YAZ [Suspect]
     Dosage: UNK
     Dates: start: 20090901
  22. ROBITUSSIN A C [CODEINE PHOSPHATE,GUAIFENESIN,PHENIRAMINE MALEATE] [Concomitant]
  23. ZYBAN [Concomitant]
     Dosage: 300 MG (DAILY DOSE), BID, ORAL
     Route: 048
     Dates: start: 20080904, end: 20090408
  24. NATACHEW [Concomitant]
     Route: 048
     Dates: start: 20070717, end: 20090408

REACTIONS (8)
  - CHOLELITHIASIS [None]
  - PYREXIA [None]
  - VOMITING [None]
  - ABDOMINAL PAIN UPPER [None]
  - ASTHENIA [None]
  - PANCREATITIS [None]
  - CHOLECYSTITIS [None]
  - NAUSEA [None]
